FAERS Safety Report 5763811-6 (Version None)
Quarter: 2008Q2

REPORT INFORMATION
  Report Type: 
  Country: None (occurrence: None)
  Receive Date: 20080606
  Receipt Date: 20080606
  Transmission Date: 20081010
  Serious: Yes (Other)
  Sender: FDA-Public Use
  Company Number: None

PATIENT
  Age: 37 Year
  Sex: Female
  Weight: 126.1 kg

DRUGS (1)
  1. BUDETRION SR 150MG TEVA USA [Suspect]
     Dosage: 150 MG TABLET 2 X A DAY ORAL
     Route: 048
     Dates: start: 20071101

REACTIONS (2)
  - DRUG INEFFECTIVE [None]
  - THERAPEUTIC RESPONSE UNEXPECTED WITH DRUG SUBSTITUTION [None]
